FAERS Safety Report 15503404 (Version 1)
Quarter: 2018Q4

REPORT INFORMATION
  Report Type: Spontaneous
  Country: US (occurrence: US)
  Receive Date: 20181015
  Receipt Date: 20181015
  Transmission Date: 20190205
  Serious: Yes (Disabling, Other)
  Sender: FDA-Public Use
  Company Number: None

PATIENT
  Age: 50 Year
  Sex: Female
  Weight: 55.35 kg

DRUGS (4)
  1. CONCERTA [Concomitant]
     Active Substance: METHYLPHENIDATE HYDROCHLORIDE
  2. NORVASC [Concomitant]
     Active Substance: AMLODIPINE BESYLATE
  3. METHYLPHENIDATE ER 18 MG TAB [Suspect]
     Active Substance: METHYLPHENIDATE
     Indication: ATTENTION DEFICIT/HYPERACTIVITY DISORDER
     Dosage: ?          QUANTITY:1 TABLET(S);?
     Route: 048
     Dates: start: 20180824, end: 20180910
  4. TRINTELLIX [Concomitant]
     Active Substance: VORTIOXETINE HYDROBROMIDE

REACTIONS (14)
  - Drug ineffective [None]
  - Tachyphrenia [None]
  - Blood pressure increased [None]
  - Therapeutic response changed [None]
  - Mental status changes [None]
  - Disturbance in attention [None]
  - Headache [None]
  - Migraine [None]
  - Product substitution issue [None]
  - Depression [None]
  - Crying [None]
  - Agitation [None]
  - Mood swings [None]
  - Chest pain [None]

NARRATIVE: CASE EVENT DATE: 20180824
